FAERS Safety Report 19139184 (Version 1)
Quarter: 2021Q2

REPORT INFORMATION
  Report Type: Spontaneous
  Country: US (occurrence: US)
  Receive Date: 20210414
  Receipt Date: 20210414
  Transmission Date: 20210717
  Serious: No
  Sender: FDA-Public Use
  Company Number: None

PATIENT
  Age: 47 Year
  Sex: Male

DRUGS (1)
  1. SIROLIMUS TAB 1MG [Suspect]
     Active Substance: SIROLIMUS
     Route: 048

REACTIONS (1)
  - White blood cell count abnormal [None]

NARRATIVE: CASE EVENT DATE: 20210126
